FAERS Safety Report 23811565 (Version 1)
Quarter: 2024Q2

REPORT INFORMATION
  Report Type: Spontaneous
  Country: GB (occurrence: GB)
  Receive Date: 20240503
  Receipt Date: 20240503
  Transmission Date: 20240716
  Serious: Yes (Other)
  Sender: FDA-Public Use
  Company Number: None

PATIENT
  Age: 66 Year
  Sex: Female
  Weight: 68 kg

DRUGS (20)
  1. AMOXICILLIN [Concomitant]
     Active Substance: AMOXICILLIN
     Dosage: 1 TAB TID
     Dates: start: 20240226, end: 20240302
  2. ATORVASTATIN [Concomitant]
     Active Substance: ATORVASTATIN
     Dosage: 1 TAB QD
     Dates: start: 20210527
  3. BENDROFLUMETHIAZIDE [Concomitant]
     Active Substance: BENDROFLUMETHIAZIDE
     Dosage: 1 TA QD(EACH MORNING )
     Dates: start: 20230815
  4. BETNOVATE [Concomitant]
     Active Substance: BETAMETHASONE
     Dosage: 1 TAB BIW
     Dates: start: 20190702
  5. CLOTRIMAZOLE [Concomitant]
     Active Substance: CLOTRIMAZOLE
     Dosage: TAKE ONE PESSARY STAT AND CREAM TWICE DAILY
     Dates: start: 20240220, end: 20240227
  6. AMOXICILLIN\CLAVULANATE POTASSIUM [Concomitant]
     Active Substance: AMOXICILLIN\CLAVULANATE POTASSIUM
     Dosage: 1 TAB TID
     Dates: start: 20240213, end: 20240220
  7. CHOLECALCIFEROL [Concomitant]
     Active Substance: CHOLECALCIFEROL
     Dosage: 1 TAB QD
     Dates: start: 20190702
  8. COLOFAC [MEBEVERINE EMBONATE] [Concomitant]
     Dosage: 1 TAB TID
     Dates: start: 20190702
  9. DOXYCYCLINE [Concomitant]
     Active Substance: DOXYCYCLINE
     Dosage: TWO NOW THEN ONE DAILY
     Dates: start: 20240304, end: 20240311
  10. ESTRADIOL [Concomitant]
     Active Substance: ESTRADIOL
     Dosage: 1 TAB BIW
     Dates: start: 20190702
  11. BECLOMETHASONE\FORMOTEROL [Concomitant]
     Active Substance: BECLOMETHASONE\FORMOTEROL
     Dosage: 2 TAB BID
     Route: 055
     Dates: start: 20240226, end: 20240327
  12. GLICLAZIDE [Concomitant]
     Active Substance: GLICLAZIDE
     Dosage: 1 TAB BIW
     Dates: start: 20220412
  13. LOSARTAN [Concomitant]
     Active Substance: LOSARTAN
     Dosage: 1 TAB QD
     Dates: start: 20210826
  14. MOMETASONE [Concomitant]
     Active Substance: MOMETASONE
     Dosage: 2 TAB QD (SPRAYS)
     Dates: start: 20240418, end: 20240419
  15. NAPROXEN [Concomitant]
     Active Substance: NAPROXEN
     Dosage: 1 TAB TID
     Dates: start: 20240201, end: 20240229
  16. OMEPRAZOLE [Concomitant]
     Active Substance: OMEPRAZOLE
     Dosage: 1 TAB QD
     Dates: start: 20210629
  17. OTOMIZE [Concomitant]
     Dosage: 1 TID (SPRAY IN AFFECTED EAR)
     Dates: start: 20240418, end: 20240419
  18. TRULICITY [Concomitant]
     Active Substance: DULAGLUTIDE
     Dosage: USE AS DIRECTED
     Dates: start: 20231019, end: 20240405
  19. VICTOZA [Concomitant]
     Active Substance: LIRAGLUTIDE
     Dosage: 1.8 MG, QD
     Dates: start: 20220519, end: 20240405
  20. RYBELSUS [Suspect]
     Active Substance: SEMAGLUTIDE
     Indication: Product used for unknown indication
     Dosage: 3 MG, QD(ON AN EMPTY STOMACH   )
     Dates: start: 20240405, end: 20240418

REACTIONS (2)
  - Palpitations [Recovered/Resolved]
  - Dyspnoea [Recovered/Resolved]
